FAERS Safety Report 5748705-4 (Version None)
Quarter: 2008Q2

REPORT INFORMATION
  Report Type: 
  Country: None (occurrence: None)
  Receive Date: 20080521
  Receipt Date: 20080512
  Transmission Date: 20081010
  Serious: Yes (Other)
  Sender: FDA-Public Use
  Company Number: GXKR2008ZA04381

PATIENT
  Age: 24 Year
  Sex: Male

DRUGS (6)
  1. VINCRISTINE [Suspect]
     Indication: HODGKIN'S DISEASE MIXED CELLULARITY STAGE III
     Dosage: CYCLE MOPP/AVB, UNKNOWN
  2. PREDNISONE [Suspect]
     Indication: HODGKIN'S DISEASE MIXED CELLULARITY STAGE III
     Dosage: CYCLE MOPP/AVB, UNKNOWN
  3. DOXORUBIN (NGX) (DOXORUBICIN) UNKNOWN [Suspect]
     Indication: HODGKIN'S DISEASE MIXED CELLULARITY STAGE III
     Dosage: CYCLE MOPP/AVB, UNKNOWN
  4. VINBLASTINE SULFATE [Suspect]
     Indication: HODGKIN'S DISEASE MIXED CELLULARITY STAGE III
     Dosage: CYCLE MOPP/AVB, UNKNOWN
  5. BLEOMYCIN (NGX) (BLEOMYCIN SULFATE) UNKNOWN [Suspect]
     Indication: HODGKIN'S DISEASE MIXED CELLULARITY STAGE III
     Dosage: CYCLE MOPP/AVB, UNKNOWN
  6. MUSTINE (CHLORMETHINE) [Suspect]
     Indication: HODGKIN'S DISEASE MIXED CELLULARITY STAGE III
     Dosage: CYCLE MOPP/AVB, UNKNOWN

REACTIONS (3)
  - FEBRILE NEUTROPENIA [None]
  - MALARIA [None]
  - PYREXIA [None]
